FAERS Safety Report 16657148 (Version 6)
Quarter: 2021Q3

REPORT INFORMATION
  Report Type: Spontaneous
  Country: US (occurrence: US)
  Receive Date: 20190801
  Receipt Date: 20210727
  Transmission Date: 20211014
  Serious: No
  Sender: FDA-Public Use
  Company Number: US-PFIZER INC-2019319754

PATIENT
  Age: 61 Year
  Sex: Female

DRUGS (1)
  1. XELJANZ XR [Suspect]
     Active Substance: TOFACITINIB CITRATE
     Dosage: 11 MG

REACTIONS (5)
  - Rash papular [Not Recovered/Not Resolved]
  - Peripheral swelling [Unknown]
  - Illness [Unknown]
  - Pain [Unknown]
  - Hypokinesia [Unknown]

NARRATIVE: CASE EVENT DATE: 201804
